FAERS Safety Report 25233099 (Version 2)
Quarter: 2025Q3

REPORT INFORMATION
  Report Type: Report from Study
  Country: JP (occurrence: JP)
  Receive Date: 20250424
  Receipt Date: 20250922
  Transmission Date: 20251020
  Serious: Yes (Other)
  Sender: UCB
  Company Number: JP-UCBJ-CD202505565UCBPHAPROD

PATIENT
  Sex: Male

DRUGS (1)
  1. ROZANOLIXIZUMAB [Suspect]
     Active Substance: ROZANOLIXIZUMAB
     Indication: Myasthenia gravis
     Route: 058
     Dates: start: 20241113

REACTIONS (2)
  - Cerebral infarction [Recovering/Resolving]
  - COVID-19 [Recovered/Resolved]
